FAERS Safety Report 17524851 (Version 1)
Quarter: 2020Q1

REPORT INFORMATION
  Report Type: Report from Study
  Country: GB (occurrence: GB)
  Receive Date: 20200311
  Receipt Date: 20200311
  Transmission Date: 20200409
  Serious: Yes (Other)
  Sender: FDA-Public Use
  Company Number: NVSC2020GB067982

PATIENT
  Sex: Female

DRUGS (1)
  1. HYRIMOZ [Suspect]
     Active Substance: ADALIMUMAB-ADAZ
     Indication: CROHN^S DISEASE
     Dosage: 40 MG, Q2W
     Route: 058
     Dates: start: 20191219

REACTIONS (4)
  - Product dose omission [Unknown]
  - Injection site paraesthesia [Unknown]
  - Injection site hypoaesthesia [Unknown]
  - Lower respiratory tract infection [Unknown]
